FAERS Safety Report 7704141-2 (Version None)
Quarter: 2011Q3

REPORT INFORMATION
  Report Type: 
  Country: None (occurrence: None)
  Receive Date: 20110823
  Receipt Date: 20110810
  Transmission Date: 20111222
  Serious: Yes (Hospitalization)
  Sender: FDA-Public Use
  Company Number: DE-CELGENEUS-062-C5013-11040372

PATIENT
  Age: 72 Year
  Sex: Male
  Weight: 54 kg

DRUGS (41)
  1. CALCIUM CARBONATE [Concomitant]
     Indication: OSTEOPOROSIS
     Dosage: 500 MILLIGRAM
     Route: 048
     Dates: start: 20110316, end: 20110409
  2. AMIODARONE HCL [Concomitant]
     Dosage: 300 MILLIGRAM
     Route: 041
     Dates: start: 20110322, end: 20110322
  3. ENOXAPARIN [Concomitant]
     Indication: THROMBOSIS PROPHYLAXIS
     Dosage: .4 MILLILITER
     Route: 058
     Dates: start: 20110311, end: 20110321
  4. ENOXAPARIN [Concomitant]
     Dosage: .4 MILLIGRAM
     Route: 058
     Dates: start: 20110420, end: 20110427
  5. FUROSEMIDE [Concomitant]
     Dosage: 20 MILLIGRAM
     Route: 048
     Dates: start: 20110504, end: 20110508
  6. MOTROPIUM KATION [Concomitant]
     Dosage: 1 INHALATION UNIT.
     Route: 055
     Dates: start: 20110504
  7. NEBIVOLOL HCL [Concomitant]
     Dosage: 2.5 MILLIGRAM
     Route: 048
     Dates: start: 20110324, end: 20110329
  8. FUROSEMIDE [Concomitant]
     Dosage: 40 MILLIGRAM
     Route: 048
     Dates: start: 20110504, end: 20110508
  9. LENALIDOMIDE [Suspect]
     Dosage: 10 MILLIGRAM
     Route: 048
     Dates: start: 20110323
  10. DEFERASIROX [Concomitant]
     Dosage: 500 MILLIGRAM
     Route: 048
     Dates: start: 20101129, end: 20110503
  11. DEFERASIROX [Concomitant]
     Dosage: 1500 MILLIGRAM
     Route: 048
     Dates: start: 20110504, end: 20110511
  12. CALCIUM CARBONATE [Concomitant]
     Dosage: 4 MILLIGRAM
     Route: 048
     Dates: start: 20110509, end: 20110520
  13. CHOLECALCIFEROL [Concomitant]
     Indication: OSTEOPOROSIS
     Dosage: 400 IU (INTERNATIONAL UNIT)
     Route: 048
     Dates: start: 20110321
  14. PHYTOMENADION [Concomitant]
     Dosage: 20 MILLIGRAM
     Route: 041
     Dates: start: 20110315, end: 20110316
  15. PHYTOMENADION [Concomitant]
     Dosage: 2 MILLIGRAM
     Route: 041
     Dates: start: 20110415, end: 20110415
  16. HYDROCHLOROTHIAZID [Concomitant]
     Dosage: 25 MILLIGRAM
     Route: 048
     Dates: start: 20100201, end: 20110311
  17. MOTROPIUM KATION [Concomitant]
     Indication: CHRONIC OBSTRUCTIVE PULMONARY DISEASE
     Dosage: 1 STROKE
     Route: 055
     Dates: start: 20110323, end: 20110408
  18. ALENDRONIC ACID [Concomitant]
     Indication: OSTEOPOROSIS
     Dosage: 10 MILLIGRAM
     Route: 048
     Dates: start: 20110321, end: 20110520
  19. TIOTROPIUM [Concomitant]
     Indication: CHRONIC OBSTRUCTIVE PULMONARY DISEASE
     Dosage: 1 INHALATION
     Route: 055
     Dates: start: 20110323
  20. ENALAPRIL MALEATE [Concomitant]
     Dosage: 2.5 MILLIGRAM
     Route: 048
     Dates: start: 20110615
  21. AMIODARONE HCL [Concomitant]
     Route: 041
     Dates: start: 20110504
  22. PANTOPRAZOLE [Concomitant]
     Dosage: 20 MILLIGRAM
     Route: 048
     Dates: start: 20110312, end: 20110624
  23. TRAMADOL HCL [Concomitant]
     Dosage: 200 MILLIGRAM
     Route: 048
     Dates: start: 20110311, end: 20110321
  24. FUROSEMIDE [Concomitant]
     Dosage: 40 MILLIGRAM
     Route: 041
     Dates: start: 20110418, end: 20110418
  25. AMIODARONE HCL [Concomitant]
     Dosage: 200 MILLIGRAM
     Route: 048
     Dates: start: 20110328
  26. METOPROLOL [Concomitant]
     Dosage: 5 MILLIGRAM
     Route: 041
     Dates: start: 20110322, end: 20110322
  27. METAMIZOLE [Concomitant]
     Dosage: 120 DROPS
     Route: 048
     Dates: start: 20110311, end: 20110320
  28. PHYTOMENADION [Concomitant]
     Dosage: 20 DROPS
     Route: 048
     Dates: start: 20110416, end: 20110427
  29. ENOXAPARIN [Concomitant]
     Dosage: 1 MILLIGRAM
     Route: 058
     Dates: start: 20110504
  30. ACETYLCYSTEINE [Concomitant]
     Indication: CHRONIC OBSTRUCTIVE PULMONARY DISEASE
     Dosage: 600 MILLIGRAM
     Route: 048
     Dates: start: 20110324, end: 20110402
  31. CALCIUM CARBONATE [Concomitant]
     Dosage: 2 GRAM
     Route: 048
     Dates: start: 20110504, end: 20110508
  32. ENOXAPARIN [Concomitant]
     Dosage: 1 MILLILITER
     Route: 058
     Dates: start: 20110321, end: 20110405
  33. FUROSEMIDE [Concomitant]
     Dosage: 80 MILLIGRAM
     Route: 048
     Dates: start: 20110509, end: 20110516
  34. ENALAPRIL MALEATE [Concomitant]
     Dosage: 10 MILLIGRAM
     Route: 048
     Dates: start: 20100201, end: 20110311
  35. FORMOTEROL FUMARATE [Concomitant]
     Indication: CHRONIC OBSTRUCTIVE PULMONARY DISEASE
     Dosage: 1
     Route: 055
     Dates: start: 20100601, end: 20110408
  36. AMIODARONE HCL [Concomitant]
     Dosage: 1000 MILLIGRAM
     Route: 048
     Dates: start: 20110322, end: 20110327
  37. METAMIZOLE [Concomitant]
     Dosage: 80 DROPS
     Route: 048
     Dates: start: 20110321, end: 20110330
  38. PHYTOMENADION [Concomitant]
     Indication: PROPHYLAXIS
     Dosage: 10 DROPS
     Route: 048
     Dates: start: 20110313, end: 20110321
  39. NEBIVOLOL HCL [Concomitant]
     Dosage: 5 MILLIGRAM
     Route: 048
     Dates: start: 20110323, end: 20110323
  40. FUROSEMIDE [Concomitant]
     Indication: PLEURAL EFFUSION
     Dosage: 60 MILLIGRAM
     Route: 041
     Dates: start: 20110323, end: 20110417
  41. HYDROCHLOROTHIAZID [Concomitant]
     Dosage: 12.5 MILLIGRAM
     Route: 048
     Dates: start: 20110324, end: 20110402

REACTIONS (1)
  - LUNG SQUAMOUS CELL CARCINOMA STAGE UNSPECIFIED [None]
